FAERS Safety Report 5199924-X (Version None)
Quarter: 2007Q1

REPORT INFORMATION
  Report Type: 
  Country: None (occurrence: None)
  Receive Date: 20070103
  Receipt Date: 20061227
  Transmission Date: 20070707
  Serious: Yes (Other)
  Sender: FDA-Public Use
  Company Number: 0604-272

PATIENT
  Age: 58 Year
  Sex: Female

DRUGS (3)
  1. DUONEB [Suspect]
     Indication: CHRONIC OBSTRUCTIVE PULMONARY DISEASE
     Dates: start: 20051201, end: 20060426
  2. ALBUTEROL [Suspect]
     Indication: CHRONIC OBSTRUCTIVE PULMONARY DISEASE
     Dates: start: 20051201, end: 20060426
  3. OXYGEN THERAPY [Concomitant]

REACTIONS (11)
  - BLOOD PRESSURE INCREASED [None]
  - CHEST CRUSHING [None]
  - CHEST DISCOMFORT [None]
  - DYSPNOEA [None]
  - FEELING ABNORMAL [None]
  - HEART RATE INCREASED [None]
  - MALAISE [None]
  - MIGRAINE [None]
  - MUSCULOSKELETAL PAIN [None]
  - PHARYNGEAL OEDEMA [None]
  - TREMOR [None]
